FAERS Safety Report 9230548 (Version 1)
Quarter: 2013Q2

REPORT INFORMATION
  Report Type: Spontaneous
  Country: US (occurrence: US)
  Receive Date: 20130415
  Receipt Date: 20130415
  Transmission Date: 20140414
  Serious: Yes (Other)
  Sender: FDA-Public Use
  Company Number: US-PFIZER INC-2008082957

PATIENT
  Age: 67 Year
  Sex: Male
  Weight: 92.97 kg

DRUGS (8)
  1. CELEBREX [Suspect]
     Indication: BACK DISORDER
     Dosage: 200 MG, 2X/DAY
     Route: 048
  2. CELEBREX [Suspect]
     Indication: ARTHRITIS
     Dosage: 200 MG, AS NEEDED
     Route: 048
  3. CELEBREX [Suspect]
     Indication: BACK PAIN
  4. ZIAC [Concomitant]
     Dosage: UNK
  5. ALLOPURINOL [Concomitant]
     Indication: GOUT
     Dosage: UNK
  6. AMLODIPINE [Concomitant]
     Indication: BLOOD PRESSURE INCREASED
     Dosage: UNK
  7. ATORVASTATIN [Concomitant]
     Indication: BLOOD CHOLESTEROL INCREASED
     Dosage: UNK
  8. LOSARTAN [Concomitant]
     Indication: CARDIAC DISORDER
     Dosage: UNK

REACTIONS (5)
  - Back pain [Unknown]
  - Arthralgia [Unknown]
  - Back disorder [Unknown]
  - Gait disturbance [Unknown]
  - Abdominal discomfort [Unknown]
